FAERS Safety Report 9098043 (Version 5)
Quarter: 2014Q3

REPORT INFORMATION
  Report Type: Spontaneous
  Country: US (occurrence: US)
  Receive Date: 20130213
  Receipt Date: 20140702
  Transmission Date: 20150326
  Serious: Yes (Hospitalization)
  Sender: FDA-Public Use
  Company Number: US-009507513-1302USA004229

PATIENT
  Sex: Male
  Weight: 80.27 kg

DRUGS (1)
  1. PROPECIA [Suspect]
     Active Substance: FINASTERIDE
     Indication: ALOPECIA
     Dosage: 1 MG, QD
     Route: 048
     Dates: start: 2000, end: 2011

REACTIONS (19)
  - QRS axis abnormal [Unknown]
  - Blood pressure increased [Unknown]
  - Sexual dysfunction [Not Recovered/Not Resolved]
  - Herpes simplex [Unknown]
  - Herpes zoster [Unknown]
  - Lung hyperinflation [Unknown]
  - Muscle strain [Unknown]
  - Hypokinesia [Unknown]
  - Inguinal hernia repair [Unknown]
  - Benign neoplasm of skin [Unknown]
  - Actinic keratosis [Unknown]
  - Back pain [Unknown]
  - Chest pain [Unknown]
  - Hyperlipidaemia [Unknown]
  - Myalgia [Unknown]
  - Erectile dysfunction [Not Recovered/Not Resolved]
  - Depression [Unknown]
  - Chest pain [Unknown]
  - White blood cell count increased [Unknown]

NARRATIVE: CASE EVENT DATE: 2002
